FAERS Safety Report 10488715 (Version 1)
Quarter: 2014Q4

REPORT INFORMATION
  Report Type: Spontaneous
  Country: US (occurrence: None)
  Receive Date: 20141001
  Receipt Date: 20141001
  Transmission Date: 20150528
  Serious: No
  Sender: FDA-Public Use
  Company Number: None

PATIENT
  Age: 16 Year
  Sex: Female

DRUGS (1)
  1. GENERIC VENALAFAXINE [Suspect]
     Active Substance: VENLAFAXINE HYDROCHLORIDE
     Dosage: 150 MG AM PO
     Route: 048
     Dates: start: 20140728, end: 20140923

REACTIONS (2)
  - Product substitution issue [None]
  - Hyperhidrosis [None]

NARRATIVE: CASE EVENT DATE: 20140923
